FAERS Safety Report 8737313 (Version 2)
Quarter: 2012Q4

REPORT INFORMATION
  Report Type: 
  Country: US (occurrence: US)
  Receive Date: 20120822
  Receipt Date: 20120831
  Transmission Date: 20130627
  Serious: Yes (Other)
  Sender: FDA-Public Use
  Company Number: CHPA2012US018146

PATIENT
  Age: 78 Year
  Sex: Female

DRUGS (3)
  1. GAS-X EXTRA STRENGTH [Suspect]
     Indication: FLATULENCE
     Dosage: 3 softgels, per day
     Route: 048
  2. PEPTO-BISMOL [Suspect]
     Dosage: Unk, Unk
  3. PROBIOTICS [Concomitant]

REACTIONS (5)
  - Cataract [Recovered/Resolved]
  - Spinal column injury [Recovered/Resolved]
  - Intervertebral disc compression [Not Recovered/Not Resolved]
  - Faeces discoloured [Not Recovered/Not Resolved]
  - Pain [Not Recovered/Not Resolved]
